FAERS Safety Report 8334789-6 (Version None)
Quarter: 2012Q2

REPORT INFORMATION
  Report Type: 
  Country: None (occurrence: None)
  Receive Date: 20120503
  Receipt Date: 20120430
  Transmission Date: 20120825
  Serious: Yes (Life-Threatening)
  Sender: FDA-Public Use
  Company Number: PHHO2001BR01889

PATIENT
  Sex: Male
  Weight: 48.3 kg

DRUGS (5)
  1. CLONIDINE [Concomitant]
     Indication: HYPERTENSION
  2. GILENYA [Suspect]
     Indication: RENAL TRANSPLANT
     Dosage: 5 MG,
     Route: 048
     Dates: start: 20010219
  3. RAD001 [Suspect]
     Indication: RENAL TRANSPLANT
     Dosage: 4 MG
     Route: 048
     Dates: start: 20010219
  4. ANAESTHETICS [Suspect]
  5. PROPRANOLOL [Concomitant]
     Indication: HYPERTENSION

REACTIONS (2)
  - HYPOTENSION [None]
  - BRADYCARDIA [None]
